FAERS Safety Report 15530952 (Version 1)
Quarter: 2018Q4

REPORT INFORMATION
  Report Type: Report from Study
  Country: None (occurrence: RO)
  Receive Date: 20181018
  Receipt Date: 20181018
  Transmission Date: 20190205
  Serious: Yes (Other)
  Sender: FDA-Public Use
  Company Number: RO-ABBVIE-18S-135-2519293-00

PATIENT
  Age: 68 Year
  Sex: Female

DRUGS (8)
  1. RIVOTRIL [Concomitant]
     Active Substance: CLONAZEPAM
     Indication: DEPRESSION
     Route: 048
     Dates: start: 201808
  2. EXVIERA [Suspect]
     Active Substance: DASABUVIR
     Indication: LIVER DISORDER
  3. VIEKIRAX [Suspect]
     Active Substance: OMBITASVIR\PARITAPREVIR\RITONAVIR
     Indication: HEPATITIS C
     Route: 048
     Dates: start: 20170527, end: 20170818
  4. URSOFALK [Concomitant]
     Active Substance: URSODIOL
     Indication: LIVER DISORDER
     Route: 048
     Dates: start: 201708
  5. ESSENTIALE FORTE [Concomitant]
     Indication: LIVER DISORDER
     Route: 048
     Dates: start: 201708
  6. VIEKIRAX [Suspect]
     Active Substance: OMBITASVIR\PARITAPREVIR\RITONAVIR
     Indication: LIVER DISORDER
  7. SILYMARIN [Concomitant]
     Active Substance: DIETARY SUPPLEMENT\HERBALS\MILK THISTLE
     Indication: LIVER DISORDER
     Route: 048
     Dates: start: 201708
  8. EXVIERA [Suspect]
     Active Substance: DASABUVIR
     Indication: HEPATITIS C
     Route: 048
     Dates: start: 20170527, end: 20170818

REACTIONS (7)
  - Blood pressure increased [Recovering/Resolving]
  - Panic attack [Not Recovered/Not Resolved]
  - Dyspnoea [Recovering/Resolving]
  - Breath odour [Not Recovered/Not Resolved]
  - Visual impairment [Not Recovered/Not Resolved]
  - Chest pain [Not Recovered/Not Resolved]
  - Excessive eye blinking [Not Recovered/Not Resolved]

NARRATIVE: CASE EVENT DATE: 201807
